FAERS Safety Report 25624226 (Version 2)
Quarter: 2025Q3

REPORT INFORMATION
  Report Type: Spontaneous
  Country: US (occurrence: US)
  Receive Date: 20250730
  Receipt Date: 20250915
  Transmission Date: 20251021
  Serious: No
  Sender: SANOFI AVENTIS
  Company Number: US-SA-2025SA218614

PATIENT
  Age: 34 Year
  Sex: Female

DRUGS (1)
  1. DUPIXENT [Suspect]
     Active Substance: DUPILUMAB
     Indication: Dermatitis atopic

REACTIONS (7)
  - Fatigue [Recovering/Resolving]
  - Arthralgia [Recovering/Resolving]
  - Dry eye [Not Recovered/Not Resolved]
  - Eye pruritus [Recovering/Resolving]
  - Condition aggravated [Recovering/Resolving]
  - Weight increased [Not Recovered/Not Resolved]
  - Ocular hyperaemia [Unknown]
